FAERS Safety Report 4727137-1 (Version None)
Quarter: 2005Q3

REPORT INFORMATION
  Report Type: 
  Country: None (occurrence: None)
  Receive Date: 20050726
  Receipt Date: 20050726
  Transmission Date: 20060218
  Serious: Yes (Hospitalization)
  Sender: FDA-Public Use
  Company Number: None

PATIENT
  Age: 39 Year
  Sex: Female
  Weight: 89.8122 kg

DRUGS (9)
  1. GEODON [Suspect]
     Indication: BIPOLAR I DISORDER
     Dosage: 20 MG PO AM
     Route: 048
     Dates: start: 20050609
  2. GEODON [Suspect]
     Dosage: 220 MG PO PM
     Route: 048
     Dates: start: 20050718
  3. PROVIGIL [Concomitant]
  4. ZOLOFT [Concomitant]
  5. XANAX XR [Concomitant]
  6. ADDERALL XR 15 [Concomitant]
  7. MULTI-VITAMIN [Concomitant]
  8. HYDROCODONE [Concomitant]
  9. MOBIC [Concomitant]

REACTIONS (1)
  - SUICIDAL IDEATION [None]
